FAERS Safety Report 5445871-5 (Version None)
Quarter: 2007Q3

REPORT INFORMATION
  Report Type: 
  Country: None (occurrence: None)
  Receive Date: 20070904
  Receipt Date: 20070823
  Transmission Date: 20080115
  Serious: Yes (Other)
  Sender: FDA-Public Use
  Company Number: 2007SP017155

PATIENT
  Age: 63 Year
  Sex: Female

DRUGS (2)
  1. TEMODAL [Suspect]
     Indication: GLIOBLASTOMA
     Dates: end: 20070706
  2. BACTRIM [Suspect]
     Indication: ANTIFUNGAL PROPHYLAXIS
     Dates: end: 20070706

REACTIONS (2)
  - SKIN EXFOLIATION [None]
  - TOXIC SKIN ERUPTION [None]
